FAERS Safety Report 6359753-8 (Version None)
Quarter: 2009Q3

REPORT INFORMATION
  Report Type: 
  Country: None (occurrence: None)
  Receive Date: 20090917
  Receipt Date: 20090907
  Transmission Date: 20100115
  Serious: Yes (Hospitalization)
  Sender: FDA-Public Use
  Company Number: GB-ELI_LILLY_AND_COMPANY-GB200909001351

PATIENT
  Age: 61 Year
  Sex: Male

DRUGS (11)
  1. CYMBALTA [Suspect]
     Indication: DEPRESSION
     Dosage: 60 MG, UNKNOWN
     Route: 048
  2. ASPIRIN [Concomitant]
     Dosage: 75 MG, UNKNOWN
     Route: 048
  3. PREDNISOLONE [Concomitant]
     Indication: CHRONIC OBSTRUCTIVE PULMONARY DISEASE
     Dosage: 30 MG, UNKNOWN
     Route: 048
     Dates: start: 20090825
  4. DOXYCYCLINE [Concomitant]
     Dosage: UNK, UNKNOWN
  5. MULTI-VIT [Concomitant]
     Dosage: UNK, UNKNOWN
  6. PROCYCLIDINE HYDROCHLORIDE 2MG TAB [Concomitant]
     Dosage: UNK, UNKNOWN
  7. RISPERIDONE [Concomitant]
     Dosage: UNK, UNKNOWN
  8. SALBUTAMOL [Concomitant]
     Dosage: UNK, UNKNOWN
  9. SERETIDE [Concomitant]
     Dosage: UNK, UNKNOWN
  10. SIMVASTATIN [Concomitant]
     Dosage: UNK, UNKNOWN
  11. TIOTROPIUM BROMIDE [Concomitant]
     Dosage: UNK, UNKNOWN

REACTIONS (1)
  - PERFORATED DUODENAL ULCER REPAIR [None]
